FAERS Safety Report 4550196-6 (Version None)
Quarter: 2005Q1

REPORT INFORMATION
  Report Type: 
  Country: None (occurrence: None)
  Receive Date: 20050112
  Receipt Date: 20050103
  Transmission Date: 20050727
  Serious: Yes (Hospitalization)
  Sender: FDA-Public Use
  Company Number: US-GLAXOSMITHKLINE-A0538959A

PATIENT
  Age: 78 Year
  Sex: Female

DRUGS (2)
  1. TUMS REGULAR TABLETS, PEPPERMINT [Suspect]
     Indication: DRUG USE FOR UNKNOWN INDICATION
     Route: 048
     Dates: start: 19990101, end: 20030101
  2. TUMS SMOOTH DISSOLVE TABLETS, PEPPERMINT [Suspect]
     Indication: DRUG USE FOR UNKNOWN INDICATION
     Route: 002
     Dates: start: 20030101, end: 20030101

REACTIONS (3)
  - ATRIAL FIBRILLATION [None]
  - HEART RATE IRREGULAR [None]
  - OSTEOPOROSIS [None]
